FAERS Safety Report 4867739-5 (Version None)
Quarter: 2005Q4

REPORT INFORMATION
  Report Type: 
  Country: None (occurrence: None)
  Receive Date: 20051222
  Receipt Date: 20020413
  Transmission Date: 20060501
  Serious: Yes (Death, Hospitalization)
  Sender: FDA-Public Use
  Company Number: HQ8264412MAR2001

PATIENT
  Age: 31 Year
  Sex: Male

DRUGS (2)
  1. GEMTUZUMAB OZOGAMICIN (GEMTUZUMAB OZOGAMICIN, INJECTION) [Suspect]
     Indication: ACUTE MYELOID LEUKAEMIA
     Dosage: SEE IMAGE
     Route: 042
     Dates: start: 19980504, end: 19980504
  2. GEMTUZUMAB OZOGAMICIN (GEMTUZUMAB OZOGAMICIN, INJECTION) [Suspect]
     Indication: ACUTE MYELOID LEUKAEMIA
     Dosage: SEE IMAGE
     Route: 042
     Dates: start: 19980520, end: 19980520

REACTIONS (15)
  - ALLOGENIC BONE MARROW TRANSPLANTATION THERAPY [None]
  - ATRIAL FLUTTER [None]
  - CHILLS [None]
  - COAGULOPATHY [None]
  - DIARRHOEA [None]
  - HAEMODYNAMIC INSTABILITY [None]
  - HERPES SIMPLEX [None]
  - HYPOKALAEMIA [None]
  - HYPOMAGNESAEMIA [None]
  - PYREXIA [None]
  - RASH [None]
  - RENAL FAILURE [None]
  - RESPIRATORY FAILURE [None]
  - STAPHYLOCOCCAL INFECTION [None]
  - VENOOCCLUSIVE LIVER DISEASE [None]
